FAERS Safety Report 10694314 (Version 4)
Quarter: 2015Q2

REPORT INFORMATION
  Report Type: Report from Study
  Country: US (occurrence: US)
  Receive Date: 20150107
  Receipt Date: 20150609
  Transmission Date: 20150821
  Serious: Yes (Other)
  Sender: FDA-Public Use
  Company Number: US-ALEXION-A201404939

PATIENT

DRUGS (1)
  1. SOLIRIS [Suspect]
     Active Substance: ECULIZUMAB
     Indication: PRODUCT USED FOR UNKNOWN INDICATION
     Route: 042

REACTIONS (6)
  - Haemoglobin decreased [Unknown]
  - Nasopharyngitis [Unknown]
  - Cough [Unknown]
  - Haemoglobin decreased [Unknown]
  - Body temperature increased [Unknown]
  - Viral infection [Unknown]

NARRATIVE: CASE EVENT DATE: 20141231
